FAERS Safety Report 6506760-8 (Version None)
Quarter: 2009Q4

REPORT INFORMATION
  Report Type: 
  Country: None (occurrence: None)
  Receive Date: 20091216
  Receipt Date: 20091201
  Transmission Date: 20100525
  Serious: Yes (Death)
  Sender: FDA-Public Use
  Company Number: 139

PATIENT
  Age: 60 Year
  Sex: Male

DRUGS (4)
  1. FAZACLO ODT [Suspect]
     Indication: SCHIZOPHRENIA, PARANOID TYPE
     Dosage: 450 MG PO DAILY
     Route: 048
     Dates: start: 20070305, end: 20070730
  2. XANAX [Concomitant]
  3. PROZAC [Concomitant]
  4. COGENTIN [Concomitant]

REACTIONS (1)
  - CARDIAC ARREST [None]
